FAERS Safety Report 11142490 (Version 2)
Quarter: 2015Q2

REPORT INFORMATION
  Report Type: Report from Study
  Country: CA (occurrence: CA)
  Receive Date: 20150527
  Receipt Date: 20150601
  Transmission Date: 20150821
  Serious: Yes (Hospitalization, Other)
  Sender: FDA-Public Use
  Company Number: PHHY2015CA064019

PATIENT
  Sex: Male

DRUGS (1)
  1. CLOZARIL [Suspect]
     Active Substance: CLOZAPINE
     Indication: PRODUCT USED FOR UNKNOWN INDICATION
     Dosage: UNK
     Route: 048
     Dates: start: 20130430

REACTIONS (7)
  - Hypotension [Unknown]
  - Pyrexia [Unknown]
  - Serotonin syndrome [Unknown]
  - Heart rate increased [Unknown]
  - Antipsychotic drug level below therapeutic [Unknown]
  - Neuroleptic malignant syndrome [Unknown]
  - Sepsis [Unknown]
